FAERS Safety Report 4864016-3 (Version None)
Quarter: 2005Q4

REPORT INFORMATION
  Report Type: 
  Country: None (occurrence: None)
  Receive Date: 20051219
  Receipt Date: 20051205
  Transmission Date: 20060501
  Serious: Yes (Disabling)
  Sender: FDA-Public Use
  Company Number: 2005BH003374

PATIENT
  Sex: Male

DRUGS (1)
  1. PROMETHAZINE [Suspect]
     Indication: NAUSEA
     Dosage: IV
     Route: 042
     Dates: start: 20041227

REACTIONS (13)
  - ARTERIAL SPASM [None]
  - ARTERIAL THROMBOSIS [None]
  - DRUG ADMINISTRATION ERROR [None]
  - FINGER AMPUTATION [None]
  - GANGRENE [None]
  - HAND AMPUTATION [None]
  - INCORRECT ROUTE OF DRUG ADMINISTRATION [None]
  - INFUSION SITE OEDEMA [None]
  - ISCHAEMIA [None]
  - NECROSIS [None]
  - OEDEMA PERIPHERAL [None]
  - PAIN IN EXTREMITY [None]
  - SKIN DISCOLOURATION [None]
